FAERS Safety Report 10727741 (Version 1)
Quarter: 2015Q1

REPORT INFORMATION
  Report Type: Spontaneous
  Country: CN (occurrence: CN)
  Receive Date: 20150121
  Receipt Date: 20150121
  Transmission Date: 20150721
  Serious: Yes (Death)
  Sender: FDA-Public Use
  Company Number: CN-BAYER-2015-008304

PATIENT
  Age: 48 Year
  Sex: Male
  Weight: 61 kg

DRUGS (4)
  1. ROCEPHIN [Suspect]
     Active Substance: CEFTRIAXONE SODIUM
     Indication: INFECTION
     Dosage: 2 G, QD
     Route: 041
     Dates: start: 20140816, end: 20140818
  2. NIMOTOP [Suspect]
     Active Substance: NIMODIPINE
     Indication: MYOCARDIAL ISCHAEMIA
     Dosage: 10 MG, BID
     Route: 041
     Dates: start: 20140509, end: 20140526
  3. OMEPRAZOLE SODIUM [Suspect]
     Active Substance: OMEPRAZOLE SODIUM
     Indication: GASTRIC PH DECREASED
     Dosage: 60 MG, QD
     Route: 041
     Dates: start: 20140815, end: 20140815
  4. CEFOXITIN [Suspect]
     Active Substance: CEFOXITIN\CEFOXITIN SODIUM
     Indication: INFECTION
     Dosage: 2 G, TID
     Route: 041
     Dates: start: 20140509, end: 20140511

REACTIONS (1)
  - Haemolytic anaemia [Fatal]

NARRATIVE: CASE EVENT DATE: 20140818
